FAERS Safety Report 15437674 (Version 4)
Quarter: 2021Q1

REPORT INFORMATION
  Report Type: Other
  Country: JP (occurrence: JP)
  Receive Date: 20180927
  Receipt Date: 20210107
  Transmission Date: 20210419
  Serious: Yes (Death)
  Sender: FDA-Public Use
  Company Number: JP-ROCHE-2189758

PATIENT
  Age: 51 Year
  Sex: Male

DRUGS (1)
  1. ACTEMRA [Suspect]
     Active Substance: TOCILIZUMAB
     Indication: CASTLEMAN^S DISEASE
     Route: 065

REACTIONS (2)
  - Disease progression [Fatal]
  - Off label use [Unknown]
